FAERS Safety Report 7922949-5 (Version None)
Quarter: 2011Q4

REPORT INFORMATION
  Report Type: 
  Country: None (occurrence: None)
  Receive Date: 20111117
  Receipt Date: 20110126
  Transmission Date: 20120403
  Serious: No
  Sender: FDA-Public Use
  Company Number: US-AMGEN-USASP2011005039

PATIENT
  Age: 40 Year
  Sex: Female
  Weight: 102.49 kg

DRUGS (5)
  1. ENBREL [Suspect]
     Indication: PRODUCT USED FOR UNKNOWN INDICATION
     Dosage: 50 MG, QWK
  2. WELLBUTRIN [Concomitant]
     Dosage: 75 MG, UNK
     Route: 048
  3. PREVACID [Concomitant]
     Dosage: 15 MG, UNK
     Route: 048
  4. CYMBALTA [Concomitant]
     Dosage: 20 MG, UNK
     Route: 048
  5. MULTIVITAMIN                       /00097801/ [Concomitant]
     Route: 048

REACTIONS (1)
  - DRUG INEFFECTIVE [None]
